FAERS Safety Report 15180959 (Version 2)
Quarter: 2018Q3

REPORT INFORMATION
  Report Type: Report from Study
  Country: None (occurrence: IE)
  Receive Date: 20180723
  Receipt Date: 20180813
  Transmission Date: 20181010
  Serious: Yes (Other)
  Sender: FDA-Public Use
  Company Number: IE-ABBVIE-18K-229-2425164-00

PATIENT
  Sex: Female

DRUGS (1)
  1. HUMIRA [Suspect]
     Active Substance: ADALIMUMAB
     Indication: CROHN^S DISEASE
     Route: 058
     Dates: start: 20171019

REACTIONS (5)
  - Chest pain [Recovering/Resolving]
  - Decreased appetite [Recovering/Resolving]
  - Pulmonary pain [Recovering/Resolving]
  - Drug ineffective [Recovering/Resolving]
  - Carbon monoxide poisoning [Recovering/Resolving]
